FAERS Safety Report 5930836-7 (Version None)
Quarter: 2008Q4

REPORT INFORMATION
  Report Type: 
  Country: None (occurrence: None)
  Receive Date: 20081021
  Receipt Date: 20080924
  Transmission Date: 20090506
  Serious: Yes (Disabling)
  Sender: FDA-Public Use
  Company Number: 2008EU001967

PATIENT
  Age: 27 Year
  Sex: Female

DRUGS (1)
  1. PROTOPIC [Suspect]
     Indication: VITILIGO
     Dosage: 0.1%, UID/QD, TOPICAL
     Route: 061
     Dates: start: 20080917, end: 20080917

REACTIONS (2)
  - EYE IRRITATION [None]
  - FEELING HOT [None]
